FAERS Safety Report 16172183 (Version 1)
Quarter: 2019Q2

REPORT INFORMATION
  Report Type: Spontaneous
  Country: US (occurrence: US)
  Receive Date: 20190409
  Receipt Date: 20190409
  Transmission Date: 20190711
  Serious: No
  Sender: FDA-Public Use
  Company Number: US-009507513-1904USA002019

PATIENT
  Sex: Female

DRUGS (3)
  1. ZETIA [Suspect]
     Active Substance: EZETIMIBE
  2. CRESTOR [Suspect]
     Active Substance: ROSUVASTATIN CALCIUM
  3. WELCHOL [Suspect]
     Active Substance: COLESEVELAM HYDROCHLORIDE

REACTIONS (2)
  - Adverse event [Unknown]
  - Drug hypersensitivity [Unknown]
